FAERS Safety Report 13109891 (Version 1)
Quarter: 2017Q1

REPORT INFORMATION
  Report Type: Spontaneous
  Country: US (occurrence: US)
  Receive Date: 20170112
  Receipt Date: 20170112
  Transmission Date: 20170428
  Serious: Yes (Other)
  Sender: FDA-Public Use
  Company Number: US-ROCHE-1100520

PATIENT
  Age: 45 Year
  Sex: Male

DRUGS (5)
  1. MSO4 [Concomitant]
     Active Substance: MORPHINE SULFATE
     Route: 065
  2. ACTIVASE [Suspect]
     Active Substance: ALTEPLASE
     Indication: PRODUCT USED FOR UNKNOWN INDICATION
     Route: 065
  3. TRIDIL [Concomitant]
     Active Substance: NITROGLYCERIN
     Route: 065
  4. TRIDIL [Concomitant]
     Active Substance: NITROGLYCERIN
     Route: 065
  5. LOPRESSOR [Concomitant]
     Active Substance: METOPROLOL TARTRATE
     Route: 042

REACTIONS (1)
  - Ventricular extrasystoles [Unknown]
